FAERS Safety Report 19884079 (Version 1)
Quarter: 2021Q3

REPORT INFORMATION
  Report Type: Spontaneous
  Country: US (occurrence: US)
  Receive Date: 20210923
  Receipt Date: 20210923
  Transmission Date: 20211014
  Serious: No
  Sender: FDA-Public Use
  Company Number: None

PATIENT

DRUGS (2)
  1. DEXTROSE AND SODIUM CHLORIDE [Suspect]
     Active Substance: DEXTROSE MONOHYDRATE\SODIUM CHLORIDE
  2. 0.9% SODIUM CHLORIDE [Suspect]
     Active Substance: SODIUM CHLORIDE

REACTIONS (4)
  - Wrong product administered [None]
  - Product barcode issue [None]
  - Product dispensing error [None]
  - Product monitoring error [None]
